FAERS Safety Report 14352580 (Version 1)
Quarter: 2018Q1

REPORT INFORMATION
  Report Type: Spontaneous
  Country: IT (occurrence: IT)
  Receive Date: 20180104
  Receipt Date: 20180104
  Transmission Date: 20180509
  Serious: No
  Sender: FDA-Public Use
  Company Number: IT-JAZZ-2017-IT-015793

PATIENT
  Age: 29 Year
  Sex: Male
  Weight: 66.67 kg

DRUGS (2)
  1. BISOPROLOL FUMARATE. [Concomitant]
     Active Substance: BISOPROLOL FUMARATE
  2. XYREM [Suspect]
     Active Substance: SODIUM OXYBATE
     Indication: NARCOLEPSY
     Dosage: UNK
     Route: 048

REACTIONS (6)
  - Vision blurred [Unknown]
  - Weight decreased [Unknown]
  - Drug ineffective [Unknown]
  - Sleep paralysis [Unknown]
  - Arthralgia [Unknown]
  - Dry mouth [Unknown]

NARRATIVE: CASE EVENT DATE: 20170509
